FAERS Safety Report 9420503 (Version 1)
Quarter: 2013Q3

REPORT INFORMATION
  Report Type: Spontaneous
  Country: US (occurrence: US)
  Receive Date: 20130725
  Receipt Date: 20130725
  Transmission Date: 20140515
  Serious: No
  Sender: FDA-Public Use
  Company Number: US-ABBOTT-13P-163-1035103-00

PATIENT
  Age: 31 Year
  Sex: 0

DRUGS (1)
  1. SYNTHROID [Suspect]
     Indication: HYPOTHYROIDISM
     Dates: start: 2012

REACTIONS (7)
  - Dizziness [Unknown]
  - Somnolence [Unknown]
  - Vision blurred [Unknown]
  - Feeling abnormal [Unknown]
  - Local swelling [Unknown]
  - Hypotension [Unknown]
  - Sinus disorder [Unknown]
